FAERS Safety Report 20725256 (Version 1)
Quarter: 2022Q2

REPORT INFORMATION
  Report Type: Spontaneous
  Country: US (occurrence: None)
  Receive Date: 20220418
  Receipt Date: 20220418
  Transmission Date: 20220721
  Serious: No
  Sender: FDA-Public Use
  Company Number: None

PATIENT

DRUGS (1)
  1. NICARDIPINE [Suspect]
     Active Substance: NICARDIPINE

REACTIONS (3)
  - Device failure [None]
  - Blood pressure fluctuation [None]
  - Blood pressure systolic abnormal [None]

NARRATIVE: CASE EVENT DATE: 20220304
